FAERS Safety Report 8615009-1 (Version None)
Quarter: 2012Q3

REPORT INFORMATION
  Report Type: 
  Country: None (occurrence: None)
  Receive Date: 20120823
  Receipt Date: 20120810
  Transmission Date: 20120928
  Serious: Yes (Death)
  Sender: FDA-Public Use
  Company Number: MX-FRI-1000037897

PATIENT

DRUGS (3)
  1. MEMANTINE HCL [Suspect]
     Dosage: 10 MG
     Route: 048
     Dates: start: 20120301, end: 20120607
  2. CAPTOPRIL [Concomitant]
  3. ANTIPSYCHOTICS [Concomitant]

REACTIONS (4)
  - WALKING DISABILITY [None]
  - HALLUCINATION [None]
  - DEATH [None]
  - EATING DISORDER [None]
